FAERS Safety Report 12253625 (Version 2)
Quarter: 2016Q3

REPORT INFORMATION
  Report Type: Spontaneous
  Country: CA (occurrence: CA)
  Receive Date: 20160411
  Receipt Date: 20160927
  Transmission Date: 20161109
  Serious: Yes (Hospitalization)
  Sender: FDA-Public Use
  Company Number: CA-LPDUSPRD-20160294

PATIENT
  Age: 48 Year
  Sex: Female

DRUGS (5)
  1. DICLOFENAC MISOPROSTOL [Concomitant]
     Active Substance: DICLOFENAC SODIUM\MISOPROSTOL
     Dosage: DOSE NOT PROVIDED
     Route: 065
  2. MIRENA, EXTENDED RELEASE [Concomitant]
     Dosage: DOSE NOT PROVIDED
     Route: 015
  3. ACETAMINOPHEN. [Concomitant]
     Active Substance: ACETAMINOPHEN
     Dosage: DOSE NOT PROVIDED
     Route: 065
  4. VENOFER [Suspect]
     Active Substance: IRON SUCROSE
     Dosage: 300 MG
     Route: 042
     Dates: start: 20151106, end: 20151106
  5. WARFARIN [Concomitant]
     Active Substance: WARFARIN
     Dosage: DOSE NOT PROVIDED
     Route: 048

REACTIONS (4)
  - Chest pain [Unknown]
  - Chills [Unknown]
  - Dizziness [Unknown]
  - Infusion related reaction [Unknown]

NARRATIVE: CASE EVENT DATE: 20151106
